FAERS Safety Report 6741913-5 (Version None)
Quarter: 2010Q2

REPORT INFORMATION
  Report Type: 
  Country: None (occurrence: None)
  Receive Date: 20100526
  Receipt Date: 20100520
  Transmission Date: 20101027
  Serious: Yes (Hospitalization)
  Sender: FDA-Public Use
  Company Number: A0860630A

PATIENT
  Age: 51 Year
  Sex: Female

DRUGS (4)
  1. ARIXTRA [Suspect]
     Indication: THROMBOSIS PROPHYLAXIS
     Dosage: 10MG PER DAY
     Route: 058
     Dates: start: 20070101
  2. SEREVENT [Concomitant]
  3. PULMICORT [Concomitant]
  4. DIOVAN [Concomitant]

REACTIONS (1)
  - HYSTERECTOMY [None]
